FAERS Safety Report 4709541-0 (Version None)
Quarter: 2005Q3

REPORT INFORMATION
  Report Type: 
  Country: None (occurrence: None)
  Receive Date: 20050706
  Receipt Date: 20050616
  Transmission Date: 20060218
  Serious: Yes (Hospitalization)
  Sender: FDA-Public Use
  Company Number: A111298

PATIENT
  Age: 64 Year
  Sex: Male
  Weight: 122 kg

DRUGS (7)
  1. DOXAZOSIN (DOXAZOSIN) [Suspect]
     Indication: HYPERTENSION
     Dosage: 4 MG (1 IN 1 D), ORAL
     Route: 048
     Dates: start: 20000926, end: 20010309
  2. ATENOLOL [Suspect]
     Indication: HYPERTENSION
     Dosage: 100 MG (1 IN 1 D), ORAL
     Route: 048
     Dates: start: 20000329, end: 20010307
  3. BENDROFLUMETHIAZIDE/POTASSIUM CHLORIDE (BENDROFLUMETHIAZIDE, POTASSIUM [Suspect]
     Indication: HYPERTENSION
     Dosage: 2.5 MG (1 IN 1 D), ORAL
     Route: 048
     Dates: start: 20000626, end: 20010309
  4. MORPHINE SULFATE [Concomitant]
  5. ACETAMINOPHEN [Concomitant]
  6. CARBAMAZEPINE [Concomitant]
  7. SUDAFED 12 HOUR [Concomitant]

REACTIONS (3)
  - ATRIAL FLUTTER [None]
  - DIZZINESS [None]
  - PULSE ABNORMAL [None]
